FAERS Safety Report 9980989 (Version 1)
Quarter: 2014Q1

REPORT INFORMATION
  Report Type: Spontaneous
  Country: US (occurrence: None)
  Receive Date: 20140306
  Receipt Date: 20140306
  Transmission Date: 20141002
  Serious: Yes (Other)
  Sender: FDA-Public Use
  Company Number: None

PATIENT
  Age: 54 Year
  Sex: Female
  Weight: 82.56 kg

DRUGS (1)
  1. RANITIDINE [Suspect]
     Indication: GASTROOESOPHAGEAL REFLUX DISEASE
     Route: 048
     Dates: start: 20131115, end: 20140221

REACTIONS (9)
  - Product odour abnormal [None]
  - Product taste abnormal [None]
  - Ear infection bacterial [None]
  - Pharyngitis [None]
  - Bacterial infection [None]
  - Malaise [None]
  - Nausea [None]
  - Product tampering [None]
  - Product quality issue [None]
